FAERS Safety Report 17291560 (Version 1)
Quarter: 2020Q1

REPORT INFORMATION
  Report Type: Report from Study
  Country: AU (occurrence: AU)
  Receive Date: 20200121
  Receipt Date: 20200121
  Transmission Date: 20200409
  Serious: Yes (Death, Hospitalization, Other)
  Sender: FDA-Public Use
  Company Number: AU-BAYER-2019-196693

PATIENT
  Age: 66 Year
  Sex: Male
  Weight: 49 kg

DRUGS (3)
  1. STIVARGA [Suspect]
     Active Substance: REGORAFENIB
     Indication: HEPATOCELLULAR CARCINOMA
     Dosage: DAILY DOSE 160 MG (3 WEEKS ON 1 WEEK OFF)
     Route: 048
     Dates: start: 201804, end: 2018
  2. STIVARGA [Suspect]
     Active Substance: REGORAFENIB
     Indication: HEPATOCELLULAR CARCINOMA
     Dosage: DAILY DOSE 80 MG
     Dates: start: 201806, end: 201909
  3. ENTECAVIR. [Concomitant]
     Active Substance: ENTECAVIR
     Dosage: DAILY DOSE .5 MG
     Route: 048
     Dates: end: 201909

REACTIONS (5)
  - Metastases to lung [Fatal]
  - Alanine aminotransferase increased [None]
  - Drug intolerance [None]
  - Hepatocellular carcinoma [Fatal]
  - Blister [None]
